FAERS Safety Report 22389692 (Version 2)
Quarter: 2024Q3

REPORT INFORMATION
  Report Type: Report from Study
  Country: GB (occurrence: GB)
  Receive Date: 20230531
  Receipt Date: 20240926
  Transmission Date: 20241017
  Serious: Yes (Death, Hospitalization, Other)
  Sender: IPSEN
  Company Number: GB-Ipsen Biopharmaceuticals, Inc.-2022-22839

PATIENT
  Age: 60 Year
  Sex: Male

DRUGS (2)
  1. LANREOTIDE ACETATE [Suspect]
     Active Substance: LANREOTIDE ACETATE
     Indication: Neuroendocrine tumour
     Dosage: 120MG EVERY 28 DAYS
     Route: 058
  2. LANREOTIDE ACETATE [Suspect]
     Active Substance: LANREOTIDE ACETATE
     Indication: Off label use
     Dosage: 120MG/0.5ML
     Route: 058

REACTIONS (3)
  - Death [Fatal]
  - Hospitalisation [Unknown]
  - Off label use [Unknown]

NARRATIVE: CASE EVENT DATE: 20230501
